FAERS Safety Report 9358614 (Version 2)
Quarter: 2013Q3

REPORT INFORMATION
  Report Type: Spontaneous
  Country: TW (occurrence: TW)
  Receive Date: 20130620
  Receipt Date: 20130717
  Transmission Date: 20140515
  Serious: Yes (Other)
  Sender: FDA-Public Use
  Company Number: PHHY2013TW060351

PATIENT
  Age: 61 Year
  Sex: Female

DRUGS (1)
  1. ALENDRONIC ACID [Suspect]
     Dosage: 70 MG, QW

REACTIONS (3)
  - Fall [Unknown]
  - Atypical femur fracture [Unknown]
  - Arthralgia [Unknown]
